FAERS Safety Report 22288506 (Version 2)
Quarter: 2023Q2

REPORT INFORMATION
  Report Type: Spontaneous
  Country: GB (occurrence: GB)
  Receive Date: 20230505
  Receipt Date: 20230522
  Transmission Date: 20230722
  Serious: Yes (Other)
  Sender: FDA-Public Use
  Company Number: GB-PFIZER INC-PV202300079211

PATIENT
  Age: 51 Year
  Sex: Male

DRUGS (2)
  1. AXITINIB [Suspect]
     Active Substance: AXITINIB
     Dosage: UNK
     Dates: start: 202203
  2. AVELUMAB [Suspect]
     Active Substance: AVELUMAB
     Dosage: UNK
     Dates: start: 202203

REACTIONS (10)
  - Myocarditis [Unknown]
  - Infusion related reaction [Unknown]
  - Tachycardia [Unknown]
  - Pruritus [Unknown]
  - Cortisol decreased [Unknown]
  - Arthritis [Unknown]
  - Chest pain [Unknown]
  - Vomiting [Unknown]
  - Diarrhoea [Unknown]
  - Neoplasm progression [Unknown]

NARRATIVE: CASE EVENT DATE: 20220401
